FAERS Safety Report 25427329 (Version 6)
Quarter: 2025Q4

REPORT INFORMATION
  Report Type: Spontaneous
  Country: US (occurrence: US)
  Receive Date: 20250612
  Receipt Date: 20251125
  Transmission Date: 20260117
  Serious: Yes (Other)
  Sender: AMGEN
  Company Number: US-AMGEN-USASP2025110814

PATIENT
  Sex: Male

DRUGS (4)
  1. OTEZLA [Suspect]
     Active Substance: APREMILAST
     Indication: Psoriasis
     Dosage: 30 MILLIGRAM, BID
     Route: 048
  2. OTEZLA [Suspect]
     Active Substance: APREMILAST
     Dosage: 30 MILLIGRAM, BID
     Route: 048
  3. OTEZLA [Suspect]
     Active Substance: APREMILAST
     Dosage: 30 MILLIGRAM, BID (1 TABLET IN MORNING AND 1 TABLET IN THE EVENING)
     Route: 048
  4. TALTZ [Concomitant]
     Active Substance: IXEKIZUMAB
     Dosage: 80 MG/ML PEN (2=2)
     Route: 065

REACTIONS (10)
  - Brain neoplasm [Unknown]
  - Squamous cell carcinoma of the parotid gland [Unknown]
  - Skin cancer [Unknown]
  - Lymphoma [Unknown]
  - Therapy non-responder [Unknown]
  - Therapy interrupted [Unknown]
  - Milk allergy [Unknown]
  - Food allergy [Unknown]
  - Psoriasis [Recovering/Resolving]
  - Diarrhoea [Unknown]
